FAERS Safety Report 23833460 (Version 1)
Quarter: 2024Q2

REPORT INFORMATION
  Report Type: Spontaneous
  Country: PL (occurrence: PL)
  Receive Date: 20240508
  Receipt Date: 20240508
  Transmission Date: 20240715
  Serious: Yes (Hospitalization, Other)
  Sender: FDA-Public Use
  Company Number: None

PATIENT
  Age: 21 Year
  Sex: Female

DRUGS (6)
  1. LEVETIRACETAM [Suspect]
     Active Substance: LEVETIRACETAM
     Indication: Epilepsy
     Dosage: UNK
     Route: 065
  2. VALPROATE [Concomitant]
     Active Substance: VALPROIC ACID
     Indication: Epilepsy
     Dosage: UNK
     Route: 065
  3. RUPATADINE [Concomitant]
     Active Substance: RUPATADINE
     Indication: Drug reaction with eosinophilia and systemic symptoms
     Dosage: 10 MILLIGRAM, BID (TWICE DAILY)
     Route: 065
  4. METHYLPREDNISOLONE [Concomitant]
     Active Substance: METHYLPREDNISOLONE
     Indication: Drug reaction with eosinophilia and systemic symptoms
     Dosage: 250 MILLIGRAM, QD
     Route: 042
  5. METHYLPREDNISOLONE [Concomitant]
     Active Substance: METHYLPREDNISOLONE
     Dosage: 1 MILLIGRAM/KILOGRAM, QD
     Route: 065
  6. CYCLOSPORINE [Concomitant]
     Active Substance: CYCLOSPORINE
     Indication: Drug reaction with eosinophilia and systemic symptoms
     Dosage: 4 MILLIGRAM/KILOGRAM, QD
     Route: 065

REACTIONS (3)
  - Alanine aminotransferase increased [Recovered/Resolved]
  - White blood cell count increased [Recovered/Resolved]
  - Skin reaction [Recovered/Resolved]
